FAERS Safety Report 10025896 (Version 2)
Quarter: 2014Q2

REPORT INFORMATION
  Report Type: Spontaneous
  Country: US (occurrence: US)
  Receive Date: 20140320
  Receipt Date: 20140507
  Transmission Date: 20141212
  Serious: No
  Sender: FDA-Public Use
  Company Number: US-009507513-1403USA008422

PATIENT
  Sex: Male

DRUGS (2)
  1. ASMANEX TWISTHALER [Suspect]
     Indication: ASTHMA
     Dosage: 1 PUFF, AS NEEDED
     Route: 055
  2. LIPITOR [Concomitant]

REACTIONS (3)
  - Drug effect decreased [Unknown]
  - Drug dose omission [Unknown]
  - Product container issue [Unknown]
